FAERS Safety Report 12599576 (Version 3)
Quarter: 2016Q3

REPORT INFORMATION
  Report Type: Spontaneous
  Country: GR (occurrence: GR)
  Receive Date: 20160727
  Receipt Date: 20160912
  Transmission Date: 20161109
  Serious: Yes (Death, Hospitalization)
  Sender: FDA-Public Use
  Company Number: PHHY2016GR102694

PATIENT
  Age: 67 Year
  Sex: Male
  Weight: 74 kg

DRUGS (4)
  1. XARELTO [Concomitant]
     Active Substance: RIVAROXABAN
     Indication: PULMONARY EMBOLISM
     Dosage: 20 MG, UNK
     Route: 065
  2. NEXIUM [Concomitant]
     Active Substance: ESOMEPRAZOLE MAGNESIUM
     Indication: GASTROOESOPHAGEAL REFLUX DISEASE
     Route: 065
  3. XOTERNA BREEZHALER [Suspect]
     Active Substance: GLYCOPYRRONIUM\INDACATEROL
     Indication: CHRONIC OBSTRUCTIVE PULMONARY DISEASE
     Dosage: UNK
     Route: 055
     Dates: start: 20141112
  4. LASIX [Concomitant]
     Active Substance: FUROSEMIDE
     Indication: RIGHT VENTRICULAR FAILURE
     Dosage: UNK
     Route: 065

REACTIONS (2)
  - Myocardial ischaemia [Fatal]
  - Respiratory distress [Unknown]
